FAERS Safety Report 4518107-7 (Version None)
Quarter: 2004Q4

REPORT INFORMATION
  Report Type: 
  Country: None (occurrence: None)
  Receive Date: 20041130
  Receipt Date: 20041125
  Transmission Date: 20050328
  Serious: Yes (Hospitalization, Other)
  Sender: FDA-Public Use
  Company Number: NLWYE213118NOV04

PATIENT
  Sex: Male

DRUGS (4)
  1. EFFEXOR XR [Suspect]
     Dosage: 150 MG 1X PER 1 DAY; SEE IMAGE
     Route: 048
     Dates: start: 20011201, end: 20040701
  2. EFFEXOR XR [Suspect]
     Dosage: 150 MG 1X PER 1 DAY; SEE IMAGE
     Route: 048
     Dates: start: 20040702, end: 20041005
  3. EFFEXOR XR [Suspect]
     Dosage: 150 MG 1X PER 1 DAY; SEE IMAGE
     Route: 048
     Dates: start: 20041006, end: 20041105
  4. EFFEXOR XR [Suspect]
     Dosage: 150 MG 1X PER 1 DAY; SEE IMAGE
     Route: 048
     Dates: start: 20041106

REACTIONS (1)
  - DRUG EXPOSURE DURING PREGNANCY [None]
